FAERS Safety Report 5355871-1 (Version None)
Quarter: 2007Q2

REPORT INFORMATION
  Report Type: 
  Country: None (occurrence: None)
  Receive Date: 20070530
  Receipt Date: 20070328
  Transmission Date: 20071010
  Serious: Yes (Hospitalization)
  Sender: FDA-Public Use
  Company Number: US200703006041

PATIENT
  Sex: Female

DRUGS (1)
  1. ZYPREXA [Suspect]
     Dosage: 2.5 MG, EACH MORNING, ORAL

REACTIONS (2)
  - INTENTIONAL OVERDOSE [None]
  - PRESCRIBED OVERDOSE [None]
